FAERS Safety Report 4300196-6 (Version None)
Quarter: 2004Q1

REPORT INFORMATION
  Report Type: 
  Country: None (occurrence: None)
  Receive Date: 20040218
  Receipt Date: 20040213
  Transmission Date: 20041129
  Serious: Yes (Hospitalization)
  Sender: FDA-Public Use
  Company Number: STA-AE-04-MTX-060

PATIENT
  Age: 60 Year
  Sex: Female

DRUGS (3)
  1. METHOTREXATE [Suspect]
     Indication: RHEUMATOID ARTHRITIS
     Dosage: 4 MG 1X PER 1 WK
     Dates: start: 19991001, end: 20011001
  2. PREDNISOLONE [Concomitant]
  3. SULDINAC (SULDINAC) [Concomitant]

REACTIONS (1)
  - MYELODYSPLASTIC SYNDROME [None]
